FAERS Safety Report 5854633-6 (Version None)
Quarter: 2008Q3

REPORT INFORMATION
  Report Type: 
  Country: None (occurrence: None)
  Receive Date: 20080822
  Receipt Date: 20071119
  Transmission Date: 20090109
  Serious: No
  Sender: FDA-Public Use
  Company Number: US-ABBOTT-07P-163-0424076-00

PATIENT
  Sex: Female
  Weight: 83.99 kg

DRUGS (2)
  1. SYNTHROID [Suspect]
     Indication: HYPOTHYROIDISM
     Route: 048
     Dates: start: 19950101
  2. PREDNISONE TAB [Concomitant]
     Indication: INFECTIOUS MONONUCLEOSIS
     Route: 048
     Dates: start: 20071011, end: 20071016

REACTIONS (4)
  - INFECTIOUS MONONUCLEOSIS [None]
  - LOCAL SWELLING [None]
  - OROPHARYNGEAL PAIN [None]
  - PYREXIA [None]
